FAERS Safety Report 4349836-6 (Version None)
Quarter: 2004Q2

REPORT INFORMATION
  Report Type: 
  Country: None (occurrence: None)
  Receive Date: 20040426
  Receipt Date: 20040415
  Transmission Date: 20050107
  Serious: Yes (Hospitalization)
  Sender: FDA-Public Use
  Company Number: 04P-163-0257661-00

PATIENT
  Age: 45 Year
  Sex: Female
  Weight: 63.5036 kg

DRUGS (3)
  1. TRICOR [Suspect]
     Indication: BLOOD TRIGLYCERIDES INCREASED
     Dosage: 160 MG, 1 IN 1 D
     Dates: start: 20020401
  2. AMLODIPINE BESYLATE [Concomitant]
  3. ASPIRIN [Concomitant]

REACTIONS (3)
  - PANCREATIC PSEUDOCYST [None]
  - PANCREATITIS [None]
  - SPLENIC INJURY [None]
